FAERS Safety Report 14726451 (Version 1)
Quarter: 2018Q2

REPORT INFORMATION
  Report Type: Spontaneous
  Country: US (occurrence: US)
  Receive Date: 20180406
  Receipt Date: 20180406
  Transmission Date: 20180711
  Serious: No
  Sender: FDA-Public Use
  Company Number: US-JNJFOC-20180238587

PATIENT
  Age: 6 Year
  Sex: Male
  Weight: 31.75 kg

DRUGS (3)
  1. ZYRTEC [Concomitant]
     Active Substance: CETIRIZINE HYDROCHLORIDE
     Route: 065
  2. CONCERTA [Suspect]
     Active Substance: METHYLPHENIDATE HYDROCHLORIDE
     Indication: ATTENTION DEFICIT/HYPERACTIVITY DISORDER
     Route: 048
     Dates: start: 201712, end: 201802
  3. FOCALIN [Suspect]
     Active Substance: DEXMETHYLPHENIDATE HYDROCHLORIDE
     Indication: ATTENTION DEFICIT/HYPERACTIVITY DISORDER
     Route: 065
     Dates: start: 20180226

REACTIONS (9)
  - Vomiting [Unknown]
  - Abnormal behaviour [Unknown]
  - Lethargy [Unknown]
  - Disorientation [Unknown]
  - Migraine [Unknown]
  - Withdrawal syndrome [Unknown]
  - Loss of personal independence in daily activities [Unknown]
  - Psychomotor hyperactivity [Unknown]
  - Vision blurred [Unknown]

NARRATIVE: CASE EVENT DATE: 20180226
